FAERS Safety Report 16965249 (Version 1)
Quarter: 2019Q4

REPORT INFORMATION
  Report Type: Spontaneous
  Country: US (occurrence: US)
  Receive Date: 20191028
  Receipt Date: 20191028
  Transmission Date: 20200122
  Serious: Yes (Hospitalization, Other)
  Sender: FDA-Public Use
  Company Number: US-SCIEGEN PHARMACEUTICALS INC-2019SCILIT00303

PATIENT
  Age: 77 Year
  Sex: Male

DRUGS (9)
  1. CLOPIDOGREL [Suspect]
     Active Substance: CLOPIDOGREL BISULFATE
  2. COLCHICINE. [Interacting]
     Active Substance: COLCHICINE
  3. ISOSORBIDE NITRATE [Concomitant]
     Active Substance: ISOSORBIDE MONONITRATE
  4. ASPIRIN. [Concomitant]
     Active Substance: ASPIRIN
  5. CARVEDILOL. [Concomitant]
     Active Substance: CARVEDILOL
  6. MULTIVITAMINS [Concomitant]
     Active Substance: VITAMINS
  7. HYDROMORPHONE [Interacting]
     Active Substance: HYDROMORPHONE
  8. ATORVASTATIN [Concomitant]
     Active Substance: ATORVASTATIN
  9. LISINOPRIL. [Concomitant]
     Active Substance: LISINOPRIL

REACTIONS (1)
  - Polyarthritis [Recovered/Resolved]
